FAERS Safety Report 5472392-6 (Version None)
Quarter: 2007Q3

REPORT INFORMATION
  Report Type: 
  Country: None (occurrence: None)
  Receive Date: 20070927
  Receipt Date: 20070913
  Transmission Date: 20080115
  Serious: Yes (Other)
  Sender: FDA-Public Use
  Company Number: 2007S1008166

PATIENT
  Age: 36 Year
  Sex: Male
  Weight: 86.1834 kg

DRUGS (5)
  1. FENTANYL TRANSDERMAL SYSTEM [Suspect]
     Indication: BACK PAIN
     Dosage: 75 UG/HR; EVERY 3 DAYS; TRANSDERMAL
     Route: 062
     Dates: start: 20070701
  2. CELEBREX [Suspect]
     Dosage: ORAL
     Route: 048
     Dates: end: 20070824
  3. INEXIUM /01479302/ (CON.) [Concomitant]
  4. OXYCODONE (CON.) [Concomitant]
  5. MUCINEX (CON.) [Concomitant]

REACTIONS (5)
  - DIZZINESS [None]
  - DYSPNOEA [None]
  - INFLUENZA LIKE ILLNESS [None]
  - PHARYNGOLARYNGEAL PAIN [None]
  - RASH GENERALISED [None]
